FAERS Safety Report 5397178-2 (Version None)
Quarter: 2007Q3

REPORT INFORMATION
  Report Type: 
  Country: None (occurrence: None)
  Receive Date: 20070725
  Receipt Date: 20070717
  Transmission Date: 20080115
  Serious: Yes (Hospitalization)
  Sender: FDA-Public Use
  Company Number: GB-ABBOTT-06P-167-0350696-00

PATIENT
  Sex: Female
  Weight: 58.5 kg

DRUGS (6)
  1. HUMIRA [Suspect]
     Indication: RHEUMATOID ARTHRITIS
     Route: 058
     Dates: start: 20060919, end: 20060925
  2. ETODOLAC [Concomitant]
     Indication: RHEUMATOID ARTHRITIS
     Route: 048
  3. METHOTREXATE [Concomitant]
     Indication: RHEUMATOID ARTHRITIS
     Route: 048
  4. FOLIC ACID [Concomitant]
     Indication: RHEUMATOID ARTHRITIS
     Route: 048
  5. FUROSEMIDE [Concomitant]
     Indication: OEDEMA
     Route: 048
  6. BUDESONIDE [Concomitant]
     Indication: ASTHMA
     Route: 055

REACTIONS (6)
  - DEHYDRATION [None]
  - HYPOTENSION [None]
  - MALAISE [None]
  - RENAL FAILURE ACUTE [None]
  - SEPSIS [None]
  - WHITE BLOOD CELL COUNT DECREASED [None]
